FAERS Safety Report 10027740 (Version 1)
Quarter: 2014Q1

REPORT INFORMATION
  Report Type: Spontaneous
  Country: None (occurrence: None)
  Receive Date: 20140319
  Receipt Date: 20140319
  Transmission Date: 20141002
  Serious: Yes (Death, Other)
  Sender: FDA-Public Use
  Company Number: 152851

PATIENT
  Age: 18 Year
  Sex: Male

DRUGS (1)
  1. DOXYCYCLINE [Suspect]
     Indication: ACNE
     Dosage: 50MG PER DAY

REACTIONS (6)
  - Suicidal ideation [None]
  - Completed suicide [None]
  - Depressed mood [None]
  - Malaise [None]
  - Depressed mood [None]
  - Asphyxia [None]
